FAERS Safety Report 7480448-1 (Version None)
Quarter: 2011Q2

REPORT INFORMATION
  Report Type: 
  Country: None (occurrence: None)
  Receive Date: 20110516
  Receipt Date: 20110503
  Transmission Date: 20111010
  Serious: Yes (Hospitalization, Other)
  Sender: FDA-Public Use
  Company Number: FR-ELI_LILLY_AND_COMPANY-FR201103001932

PATIENT
  Age: 84 Year
  Sex: Female

DRUGS (3)
  1. FORTEO [Suspect]
     Indication: OSTEOPOROSIS
     Dosage: 20 UG, QD
     Route: 058
     Dates: start: 20100101, end: 20101020
  2. TANAKAN [Concomitant]
     Indication: MEMORY IMPAIRMENT
     Dosage: 3 DF, QD
     Route: 048
  3. LIPANOR [Concomitant]
     Indication: DYSLIPIDAEMIA
     Dosage: 1 DF, QD
     Route: 048
     Dates: end: 20101020

REACTIONS (3)
  - AORTIC VALVE INCOMPETENCE [None]
  - HYPERCALCAEMIA [None]
  - TRANSIENT ISCHAEMIC ATTACK [None]
